FAERS Safety Report 10597410 (Version 1)
Quarter: 2014Q4

REPORT INFORMATION
  Report Type: Spontaneous
  Country: JP (occurrence: JP)
  Receive Date: 20141121
  Receipt Date: 20141121
  Transmission Date: 20150529
  Serious: Yes (Hospitalization)
  Sender: FDA-Public Use
  Company Number: PHJP2014JP001331

PATIENT
  Sex: Female

DRUGS (1)
  1. TEGRETOL [Suspect]
     Active Substance: CARBAMAZEPINE
     Indication: PRODUCT USED FOR UNKNOWN INDICATION
     Dosage: 100 MG,
     Route: 048

REACTIONS (11)
  - Hypoglycaemia [Unknown]
  - Asthenia [Unknown]
  - Malaise [Unknown]
  - Cold sweat [Unknown]
  - Dizziness [Unknown]
  - Headache [Unknown]
  - Hyperventilation [Unknown]
  - Peripheral coldness [Unknown]
  - Idiosyncratic drug reaction [Unknown]
  - Nightmare [Unknown]
  - Nausea [Unknown]
